FAERS Safety Report 8428807-4 (Version None)
Quarter: 2012Q2

REPORT INFORMATION
  Report Type: 
  Country: None (occurrence: None)
  Receive Date: 20120606
  Receipt Date: 20120525
  Transmission Date: 20120825
  Serious: Yes (Hospitalization)
  Sender: FDA-Public Use
  Company Number: DKLU1081422

PATIENT
  Age: 50 Year
  Sex: Male

DRUGS (9)
  1. ONFI [Suspect]
     Indication: PRODUCT USED FOR UNKNOWN INDICATION
     Dosage: ORAL
     Route: 048
     Dates: end: 20110101
  2. RIFATER [Concomitant]
  3. MOXIFLOXACIN HCL [Concomitant]
  4. DEPAKENE [Suspect]
     Indication: EPILEPSY
     Dosage: ORAL
     Route: 048
     Dates: end: 20101130
  5. LOVENOX [Suspect]
     Indication: PRODUCT USED FOR UNKNOWN INDICATION
     Dosage: ORAL
     Route: 048
     Dates: start: 20101203, end: 20110103
  6. ATOVAQUONE [Suspect]
     Indication: PRODUCT USED FOR UNKNOWN INDICATION
     Dosage: ORAL
     Route: 048
     Dates: start: 20110101, end: 20110101
  7. MYAMBUTOL [Concomitant]
  8. BACTRIM [Suspect]
     Indication: PRODUCT USED FOR UNKNOWN INDICATION
     Dosage: ORAL
     Route: 048
     Dates: start: 20101203, end: 20110103
  9. RIMIFON [Concomitant]

REACTIONS (10)
  - SKIN LESION [None]
  - LIVER INJURY [None]
  - ENCEPHALITIS [None]
  - PULMONARY TUBERCULOSIS [None]
  - THROMBOCYTOPENIA [None]
  - TRANSAMINASES INCREASED [None]
  - EYELID OEDEMA [None]
  - BRONCHOPULMONARY ASPERGILLOSIS [None]
  - GENERALISED ERYTHEMA [None]
  - NEUTROPENIA [None]
